FAERS Safety Report 7730165-5 (Version None)
Quarter: 2011Q3

REPORT INFORMATION
  Report Type: 
  Country: None (occurrence: None)
  Receive Date: 20110906
  Receipt Date: 20110831
  Transmission Date: 20111222
  Serious: Yes (Other)
  Sender: FDA-Public Use
  Company Number: US-B.I. PHARMACEUTICALS,INC./RIDGEFIELD-2011-BP-15868BP

PATIENT
  Sex: Male

DRUGS (8)
  1. M.V.I. [Concomitant]
     Indication: PROPHYLAXIS
  2. FUROSEMIDE [Concomitant]
     Indication: BLOOD PRESSURE
  3. FISH OIL [Concomitant]
     Indication: PROPHYLAXIS
  4. CARVEDILOL [Concomitant]
     Indication: BLOOD CHOLESTEROL
  5. ENALAPRIL MALEATE [Concomitant]
     Indication: BLOOD PRESSURE
  6. SPIRIVA [Suspect]
     Indication: CHRONIC OBSTRUCTIVE PULMONARY DISEASE
     Dosage: 18 MCG
     Route: 055
     Dates: start: 20110201, end: 20110824
  7. FELODIPINE [Concomitant]
     Indication: BLOOD PRESSURE
  8. ZETIA [Concomitant]
     Indication: BLOOD CHOLESTEROL

REACTIONS (4)
  - URINARY RETENTION [None]
  - GROIN PAIN [None]
  - BLADDER CANCER [None]
  - SWELLING FACE [None]
